FAERS Safety Report 21333154 (Version 3)
Quarter: 2022Q3

REPORT INFORMATION
  Report Type: Spontaneous
  Country: GB (occurrence: GB)
  Receive Date: 20220914
  Receipt Date: 20220916
  Transmission Date: 20221027
  Serious: Yes (Other)
  Sender: FDA-Public Use
  Company Number: GB-PFIZER INC-PV202200055542

PATIENT
  Age: 70 Year
  Sex: Male

DRUGS (3)
  1. CARBOPLATIN [Suspect]
     Active Substance: CARBOPLATIN
     Indication: Bladder cancer
     Dosage: UNK, CYCLIC (THIRD CYCLE)
     Route: 042
  2. CARBOPLATIN [Suspect]
     Active Substance: CARBOPLATIN
     Dosage: UNK, CYCLIC (FOURTH CYCLE)
     Route: 042
  3. ETOPOSIDE [Concomitant]
     Active Substance: ETOPOSIDE
     Indication: Bladder cancer
     Dosage: UNK, CYCLIC

REACTIONS (8)
  - Ocular toxicity [Not Recovered/Not Resolved]
  - Vision blurred [Not Recovered/Not Resolved]
  - Optic atrophy [Not Recovered/Not Resolved]
  - Subretinal fluid [Not Recovered/Not Resolved]
  - Retinal oedema [Not Recovered/Not Resolved]
  - Pupillary reflex impaired [Not Recovered/Not Resolved]
  - Arteriosclerotic retinopathy [Not Recovered/Not Resolved]
  - Optic disc haemorrhage [Not Recovered/Not Resolved]
